FAERS Safety Report 15752652 (Version 3)
Quarter: 2019Q1

REPORT INFORMATION
  Report Type: Spontaneous
  Country: US (occurrence: US)
  Receive Date: 20181221
  Receipt Date: 20190115
  Transmission Date: 20190417
  Serious: No
  Sender: FDA-Public Use
  Company Number: US-BEH-2018097799

PATIENT
  Age: 63 Year
  Sex: Female

DRUGS (24)
  1. ALBUTEROL SULFATE. [Concomitant]
     Active Substance: ALBUTEROL SULFATE
  2. SYNTHROID [Concomitant]
     Active Substance: LEVOTHYROXINE SODIUM
  3. XYZAL [Concomitant]
     Active Substance: LEVOCETIRIZINE DIHYDROCHLORIDE
     Dosage: 5 MG, UNK
     Route: 065
  4. DULAGLUTIDE. [Concomitant]
     Active Substance: DULAGLUTIDE
     Dosage: 1.5 MG / 0.5 ML, UNK
     Route: 065
  5. DEXILANT [Concomitant]
     Active Substance: DEXLANSOPRAZOLE
  6. FOLIC ACID. [Concomitant]
     Active Substance: FOLIC ACID
  7. BUMEX [Concomitant]
     Active Substance: BUMETANIDE
  8. COUMADIN [Concomitant]
     Active Substance: WARFARIN SODIUM
  9. DICLOFENAC SODIUM. [Concomitant]
     Active Substance: DICLOFENAC SODIUM
  10. LAMICTAL [Concomitant]
     Active Substance: LAMOTRIGINE
  11. METHOTREXATE. [Concomitant]
     Active Substance: METHOTREXATE
  12. PLAQUENIL                          /00072602/ [Concomitant]
     Active Substance: HYDROXYCHLOROQUINE DIPHOSPHATE
  13. HIZENTRA [Suspect]
     Active Substance: HUMAN IMMUNOGLOBULIN G
     Dosage: 10 G (50 ML), QW
     Route: 058
     Dates: start: 201711, end: 201901
  14. REGLAN [Concomitant]
     Active Substance: METOCLOPRAMIDE HYDROCHLORIDE
     Dosage: 10 MG, UNK
     Route: 065
  15. CARBINOXAMINE MALEATE. [Concomitant]
     Active Substance: CARBINOXAMINE MALEATE
  16. POTASSIUM [Concomitant]
     Active Substance: POTASSIUM
  17. HIZENTRA [Suspect]
     Active Substance: HUMAN IMMUNOGLOBULIN G
     Dosage: UNK
     Route: 058
     Dates: start: 201812, end: 201812
  18. ASPIRIN. [Concomitant]
     Active Substance: ASPIRIN
  19. SINGULAIR [Concomitant]
     Active Substance: MONTELUKAST SODIUM
  20. VALIUM [Concomitant]
     Active Substance: DIAZEPAM
  21. HIZENTRA [Suspect]
     Active Substance: HUMAN IMMUNOGLOBULIN G
     Indication: IMMUNODEFICIENCY COMMON VARIABLE
     Dosage: 10 G (50 ML), QW
     Route: 058
     Dates: start: 201711, end: 201812
  22. AMITIZA [Concomitant]
     Active Substance: LUBIPROSTONE
  23. COLACE [Concomitant]
     Active Substance: DOCUSATE SODIUM
  24. SEROQUEL [Concomitant]
     Active Substance: QUETIAPINE FUMARATE

REACTIONS (2)
  - Pharyngitis streptococcal [Recovered/Resolved]
  - Pyrexia [Recovered/Resolved]

NARRATIVE: CASE EVENT DATE: 201812
